FAERS Safety Report 6490183-4 (Version None)
Quarter: 2009Q4

REPORT INFORMATION
  Report Type: 
  Country: None (occurrence: None)
  Receive Date: 20091211
  Receipt Date: 20091028
  Transmission Date: 20100525
  Serious: No
  Sender: FDA-Public Use
  Company Number: A0813802A

PATIENT
  Age: 78 Year
  Sex: Female

DRUGS (1)
  1. FLONASE [Suspect]
     Dosage: 1SPR TWICE PER DAY
     Route: 045

REACTIONS (1)
  - RHINORRHOEA [None]
